FAERS Safety Report 5740413-9 (Version None)
Quarter: 2008Q2

REPORT INFORMATION
  Report Type: 
  Country: None (occurrence: None)
  Receive Date: 20080516
  Receipt Date: 20080506
  Transmission Date: 20081010
  Serious: Yes (Hospitalization, Other)
  Sender: FDA-Public Use
  Company Number: ES-ELI_LILLY_AND_COMPANY-ES200804007273

PATIENT
  Age: 56 Year
  Sex: Male

DRUGS (1)
  1. XIGRIS [Suspect]
     Indication: SEPSIS
     Dosage: 0.024 MG/KG, EVERY HOUR
     Route: 065
     Dates: start: 20080429, end: 20080503

REACTIONS (4)
  - ACTIVATED PARTIAL THROMBOPLASTIN TIME PROLONGED [None]
  - EPISTAXIS [None]
  - THROMBOCYTOPENIA [None]
  - WOUND HAEMORRHAGE [None]
